FAERS Safety Report 9688154 (Version 1)
Quarter: 2013Q4

REPORT INFORMATION
  Report Type: Spontaneous
  Country: US (occurrence: None)
  Receive Date: 20131113
  Receipt Date: 20131113
  Transmission Date: 20140711
  Serious: No
  Sender: FDA-Public Use
  Company Number: None

PATIENT
  Age: 64 Year
  Sex: Male

DRUGS (1)
  1. BENAZEPRIL W/HYDROCHLOROTHIAZIDE [Suspect]
     Dates: start: 20101015, end: 20120917

REACTIONS (9)
  - Jaundice [None]
  - Cholestasis [None]
  - Nausea [None]
  - Vomiting [None]
  - Abdominal pain [None]
  - Pruritus [None]
  - Insomnia [None]
  - Cholelithiasis [None]
  - Hepatocellular injury [None]
